FAERS Safety Report 5589302-3 (Version None)
Quarter: 2008Q1

REPORT INFORMATION
  Report Type: 
  Country: None (occurrence: None)
  Receive Date: 20080109
  Receipt Date: 20071226
  Transmission Date: 20080703
  Serious: Yes (Life-Threatening, Hospitalization)
  Sender: FDA-Public Use
  Company Number: ENC200700212

PATIENT
  Age: 78 Year
  Sex: Male

DRUGS (5)
  1. ARGATROBAN [Suspect]
     Indication: CEREBRAL ARTERY EMBOLISM
     Dosage: 60 ML, QD, INTRAVENOUS
     Route: 042
     Dates: start: 20071021, end: 20071021
  2. RADICUT(EDARAVONE) [Suspect]
     Indication: CEREBRAL ARTERY EMBOLISM
     Dosage: 30 ML, BID, INTRAVENOUS
     Route: 042
     Dates: start: 20071020, end: 20071024
  3. ACTIVASE [Suspect]
     Indication: CEREBRAL ARTERY EMBOLISM
     Dosage: 40.6 ML, QD, INTRAVENOUS
     Route: 042
     Dates: start: 20071020, end: 20071020
  4. DEXTRAN (DEXTRAN) [Concomitant]
  5. SODIUM CHLORIDE [Concomitant]

REACTIONS (6)
  - CAROTID ARTERY OCCLUSION [None]
  - HAEMORRHAGIC CEREBRAL INFARCTION [None]
  - INTERNATIONAL NORMALISED RATIO DECREASED [None]
  - PUPILS UNEQUAL [None]
  - RENAL FAILURE ACUTE [None]
  - WHITE BLOOD CELL COUNT INCREASED [None]
